FAERS Safety Report 6471705-6 (Version None)
Quarter: 2009Q4

REPORT INFORMATION
  Report Type: 
  Country: None (occurrence: None)
  Receive Date: 20091203
  Receipt Date: 20080310
  Transmission Date: 20100525
  Serious: Yes (Hospitalization)
  Sender: FDA-Public Use
  Company Number: ES-ELI_LILLY_AND_COMPANY-ES200803002890

PATIENT
  Age: 85 Year
  Sex: Male

DRUGS (5)
  1. FORTEO [Suspect]
     Indication: OSTEOPOROSIS
     Dosage: 20 UG, UNKNOWN
     Route: 058
     Dates: start: 20080208
  2. MORPHINE [Concomitant]
     Indication: PAIN
     Dosage: UNK, UNKNOWN
     Route: 062
  3. IDEOS [Concomitant]
     Dosage: UNK, UNKNOWN
  4. EPLERENONE [Concomitant]
     Indication: CARDIAC DISORDER
     Dosage: UNK, UNKNOWN
  5. SEGURIL [Concomitant]
     Indication: CARDIAC DISORDER
     Dosage: UNK, UNKNOWN

REACTIONS (2)
  - BACK PAIN [None]
  - LUMBAR SPINE FLATTENING [None]
